FAERS Safety Report 15979335 (Version 2)
Quarter: 2019Q1

REPORT INFORMATION
  Report Type: Spontaneous
  Country: US (occurrence: US)
  Receive Date: 20190219
  Receipt Date: 20190226
  Transmission Date: 20190418
  Serious: No
  Sender: FDA-Public Use
  Company Number: US-GLAXOSMITHKLINE-US2019025506

PATIENT
  Age: 77 Year
  Sex: Female

DRUGS (2)
  1. ABREVA [Suspect]
     Active Substance: DOCOSANOL
     Indication: ORAL HERPES
     Dosage: UNK UNK, PRN
     Route: 061
     Dates: start: 20190204
  2. ABREVA [Suspect]
     Active Substance: DOCOSANOL
     Dosage: UNK

REACTIONS (4)
  - Rhinorrhoea [Unknown]
  - Wrong technique in product usage process [Unknown]
  - Oral herpes [Recovered/Resolved]
  - Inappropriate schedule of product administration [Unknown]
